FAERS Safety Report 12459775 (Version 1)
Quarter: 2016Q2

REPORT INFORMATION
  Report Type: Spontaneous
  Country: IT (occurrence: IT)
  Receive Date: 20160613
  Receipt Date: 20160613
  Transmission Date: 20160815
  Serious: Yes (Other)
  Sender: FDA-Public Use
  Company Number: IT-TEVA-666616ACC

PATIENT
  Age: 54 Year
  Sex: Female

DRUGS (2)
  1. ALENDRONATE SODIUM. [Suspect]
     Active Substance: ALENDRONATE SODIUM
     Indication: OSTEOPOROSIS
     Dates: start: 20110101, end: 20160101
  2. CALCIUM CARBONATE + COLECALCIFEROL [Suspect]
     Active Substance: CALCIUM CARBONATE\CHOLECALCIFEROL
     Indication: OSTEOPOROSIS
     Dosage: 1 DOSAGE FORMS DAILY; CALCIUM CARBONATE 1 G + COLECALCIFEROL 800 IU
     Dates: start: 20110101

REACTIONS (5)
  - Condition aggravated [Recovering/Resolving]
  - Spinal fracture [Recovering/Resolving]
  - Hyperparathyroidism secondary [Recovered/Resolved]
  - Nausea [Recovering/Resolving]
  - Abdominal distension [Recovering/Resolving]

NARRATIVE: CASE EVENT DATE: 20110101
